FAERS Safety Report 24622084 (Version 4)
Quarter: 2025Q4

REPORT INFORMATION
  Report Type: Report from Study
  Country: KR (occurrence: KR)
  Receive Date: 20241114
  Receipt Date: 20251210
  Transmission Date: 20260118
  Serious: Yes (Hospitalization, Other)
  Sender: ABBVIE
  Company Number: KR-ABBVIE-5995644

PATIENT
  Age: 75 Year
  Sex: Female
  Weight: 51 kg

DRUGS (111)
  1. VENCLEXTA [Suspect]
     Active Substance: VENETOCLAX
     Indication: Acute myeloid leukaemia
     Route: 048
     Dates: start: 20241025, end: 20241121
  2. VENCLEXTA [Suspect]
     Active Substance: VENETOCLAX
     Indication: Acute myeloid leukaemia
     Route: 048
     Dates: start: 20241213, end: 20250109
  3. VENCLEXTA [Suspect]
     Active Substance: VENETOCLAX
     Indication: Acute myeloid leukaemia
     Route: 048
     Dates: start: 20250421, end: 20250518
  4. VENCLEXTA [Suspect]
     Active Substance: VENETOCLAX
     Indication: Acute myeloid leukaemia
     Route: 048
     Dates: start: 20250526, end: 20250608
  5. VENCLEXTA [Suspect]
     Active Substance: VENETOCLAX
     Indication: Acute myeloid leukaemia
     Route: 048
     Dates: start: 20250124, end: 20250221
  6. VENCLEXTA [Suspect]
     Active Substance: VENETOCLAX
     Indication: Acute myeloid leukaemia
     Route: 048
     Dates: start: 20250707, end: 20250803
  7. VENCLEXTA [Suspect]
     Active Substance: VENETOCLAX
     Indication: Acute myeloid leukaemia
     Route: 048
     Dates: start: 20250310, end: 20250406
  8. VENCLEXTA [Suspect]
     Active Substance: VENETOCLAX
     Indication: Acute myeloid leukaemia
     Route: 048
     Dates: start: 2025
  9. Bukwang midazolam [Concomitant]
     Indication: Premedication
     Dosage: 3 MILLIGRAM/3 MILLILITER
     Route: 042
     Dates: start: 20241106, end: 20241106
  10. Twolion [Concomitant]
     Indication: Rash
     Route: 048
     Dates: start: 20241115, end: 20241121
  11. NOXAFIL [Concomitant]
     Active Substance: POSACONAZOLE
     Indication: Antifungal prophylaxis
     Dosage: 100 MG
     Route: 048
     Dates: start: 20211025, end: 20241126
  12. EXJADE [Concomitant]
     Active Substance: DEFERASIROX
     Indication: Prophylaxis
     Dosage: 360 MG
     Route: 048
     Dates: start: 20241104, end: 20241113
  13. EXJADE [Concomitant]
     Active Substance: DEFERASIROX
     Indication: Prophylaxis
     Dosage: 180 MG
     Route: 048
     Dates: start: 20241031, end: 20241103
  14. HERBALS [Concomitant]
     Active Substance: HERBALS
     Indication: Prophylaxis
     Route: 048
     Dates: start: 20241120, end: 20241126
  15. HERBALS [Concomitant]
     Active Substance: HERBALS
     Indication: Prophylaxis
     Route: 048
     Dates: start: 20241127
  16. COUGH SYRUP [Concomitant]
     Active Substance: DEXTROMETHORPHAN HYDROBROMIDE\GUAIFENESIN
     Indication: Cough
     Dosage: TIME INTERVAL: 0.33333333 DAYS: 20 ML
     Route: 048
     Dates: start: 20241106, end: 20241122
  17. COUGH SYRUP [Concomitant]
     Active Substance: DEXTROMETHORPHAN HYDROBROMIDE\GUAIFENESIN
     Indication: Cough
     Dosage: 20 ML
     Route: 048
     Dates: start: 20241026, end: 20241027
  18. COUGH SYRUP [Concomitant]
     Active Substance: DEXTROMETHORPHAN HYDROBROMIDE\GUAIFENESIN
     Indication: Cough
     Dosage: TIME INTERVAL: 0.33333333 DAYS
     Route: 048
     Dates: start: 20241127
  19. COUGH SYRUP [Concomitant]
     Active Substance: DEXTROMETHORPHAN HYDROBROMIDE\GUAIFENESIN
     Indication: Cough
     Route: 048
     Dates: start: 20241125, end: 20241126
  20. Dexid [Concomitant]
     Indication: Diabetic neuropathy
     Route: 048
     Dates: start: 20240930
  21. CODEINE PHOSPHATE [Concomitant]
     Active Substance: CODEINE PHOSPHATE
     Indication: Cough
     Route: 048
     Dates: start: 20241109, end: 20241120
  22. CODEINE PHOSPHATE [Concomitant]
     Active Substance: CODEINE PHOSPHATE
     Indication: Cough
     Dosage: TIME INTERVAL: 0.33333333 DAYS
     Route: 048
     Dates: start: 20241109, end: 20241111
  23. CODEINE PHOSPHATE [Concomitant]
     Active Substance: CODEINE PHOSPHATE
     Indication: Cough
     Route: 048
     Dates: start: 20241107, end: 20241108
  24. SULFAMETHOXAZOLE\TRIMETHOPRIM [Concomitant]
     Active Substance: SULFAMETHOXAZOLE\TRIMETHOPRIM
     Indication: Infection prophylaxis
     Route: 048
     Dates: start: 20241107, end: 20241108
  25. SULFAMETHOXAZOLE\TRIMETHOPRIM [Concomitant]
     Active Substance: SULFAMETHOXAZOLE\TRIMETHOPRIM
     Indication: Infection prophylaxis
     Route: 048
     Dates: start: 20241106, end: 20241106
  26. SULFAMETHOXAZOLE\TRIMETHOPRIM [Concomitant]
     Active Substance: SULFAMETHOXAZOLE\TRIMETHOPRIM
     Indication: Infection prophylaxis
     Route: 048
     Dates: start: 20241113, end: 20241119
  27. Dong a gaster [Concomitant]
     Indication: Gastritis prophylaxis
     Dosage: 20 MG
     Route: 048
     Dates: start: 20241104, end: 20241112
  28. Dulackhan easy [Concomitant]
     Indication: Constipation
     Dosage: 500ML
     Route: 048
     Dates: start: 20241111
  29. Paracon [Concomitant]
     Indication: Pyrexia
     Dosage: FREQUENCY TEXT: PRN, 75 ML
     Route: 042
     Dates: start: 20241026
  30. Tapocin [Concomitant]
     Indication: Pyrexia
     Dosage: 400MG
     Route: 042
     Dates: start: 20241104, end: 20241121
  31. Peniramin [Concomitant]
     Indication: Premedication
     Dosage: FREQUENCY TEXT: PRN
     Route: 042
     Dates: start: 20241024, end: 20241121
  32. Anplag sr [Concomitant]
     Indication: Vascular disorder prophylaxis
     Route: 048
     Dates: start: 20240930
  33. SYNTHROID [Concomitant]
     Active Substance: LEVOTHYROXINE SODIUM
     Indication: Thyroid cancer
     Dosage: 0.1 MG
     Route: 048
     Dates: start: 20210730
  34. NOVORAPID [Concomitant]
     Active Substance: INSULIN ASPART
     Indication: Diabetes mellitus
     Dosage: UNIT DOSE : UKIU?100UNIT/ML
     Route: 058
     Dates: start: 20241107
  35. Furix [Concomitant]
     Indication: Oedema
     Dosage: 40 MG
     Route: 048
     Dates: start: 20241104, end: 20241119
  36. TRAZODONE HYDROCHLORIDE [Concomitant]
     Active Substance: TRAZODONE HYDROCHLORIDE
     Indication: Insomnia
     Dosage: 25 MG
     Route: 048
     Dates: start: 20241106, end: 20241111
  37. TRAZODONE HYDROCHLORIDE [Concomitant]
     Active Substance: TRAZODONE HYDROCHLORIDE
     Indication: Insomnia
     Dosage: 25 MG
     Route: 048
     Dates: start: 20241105, end: 20241105
  38. TRAZODONE HYDROCHLORIDE [Concomitant]
     Active Substance: TRAZODONE HYDROCHLORIDE
     Indication: Insomnia
     Dosage: 25 MG
     Route: 048
     Dates: start: 20241112
  39. ANAPROX [Concomitant]
     Active Substance: NAPROXEN SODIUM
     Indication: Pyrexia
     Route: 048
     Dates: start: 20241105, end: 20241113
  40. Levoplus [Concomitant]
     Indication: Infection prophylaxis
     Route: 048
     Dates: start: 20241025, end: 20241028
  41. Levoplus [Concomitant]
     Indication: Infection prophylaxis
     Route: 048
     Dates: start: 20241122, end: 20241126
  42. Levoplus [Concomitant]
     Indication: Infection prophylaxis
     Route: 048
     Dates: start: 20250721, end: 20250803
  43. Levoplus [Concomitant]
     Indication: Infection prophylaxis
     Route: 048
     Dates: start: 20250331, end: 20250420
  44. Levoplus [Concomitant]
     Indication: Infection prophylaxis
     Route: 048
     Dates: start: 20250526, end: 20250706
  45. Levoplus [Concomitant]
     Indication: Infection prophylaxis
     Route: 048
     Dates: start: 20250221, end: 20250225
  46. MAXIPIME [Concomitant]
     Active Substance: CEFEPIME HYDROCHLORIDE
     Indication: Pyrexia
     Dosage: TIME INTERVAL: 0.33333333 DAYS: 1 G
     Route: 042
     Dates: start: 20241027, end: 20241103
  47. XYZAL [Concomitant]
     Active Substance: LEVOCETIRIZINE DIHYDROCHLORIDE
     Indication: Rash
     Route: 048
     Dates: start: 20241115, end: 20241121
  48. Yuhan meropen [Concomitant]
     Indication: Pyrexia
     Dosage: TIME INTERVAL: 0.33333333 DAYS: 500 MG
     Route: 042
     Dates: start: 20241104, end: 20241113
  49. Yuhan meropen [Concomitant]
     Indication: Pyrexia
     Dosage: TIME INTERVAL: 0.33333333 DAYS
     Route: 042
     Dates: start: 20241120, end: 20241121
  50. Yuhan meropen [Concomitant]
     Indication: Pyrexia
     Route: 042
     Dates: start: 20241114, end: 20241119
  51. VENTOLIN [Concomitant]
     Active Substance: ALBUTEROL SULFATE
     Indication: Dyspnoea
     Dosage: RES SOLN 5MG/ML?RESPIRATORY (INHALATION)
     Dates: start: 20241108, end: 20241108
  52. Zemiglo [Concomitant]
     Indication: Diabetes mellitus
     Dosage: 50 MG
     Route: 048
     Dates: start: 20240930, end: 20241113
  53. PULMICORT TURBUHALER [Concomitant]
     Active Substance: BUDESONIDE
     Indication: Dyspnoea
     Dosage: RESPULE 0.5MG/2ML?RESPIRATORY (INHALATION)
     Dates: start: 20241108, end: 20241111
  54. PULMICORT TURBUHALER [Concomitant]
     Active Substance: BUDESONIDE
     Indication: Dyspnoea
     Dosage: RESPULE 0.5MG/2ML?RESPIRATORY (INHALATION)
     Dates: start: 20241112, end: 20241112
  55. LIPITOR [Concomitant]
     Active Substance: ATORVASTATIN CALCIUM
     Indication: Dyslipidaemia
     Dosage: 20 MG
     Route: 048
     Dates: start: 20210831, end: 20241027
  56. PHAZYME [Concomitant]
     Active Substance: DIMETHICONE 410
     Indication: Prophylaxis
     Dosage: TIME INTERVAL: 0.33333333 DAYS: 95MG
     Route: 048
     Dates: start: 20241114, end: 20241120
  57. Tacenol [Concomitant]
     Indication: Pyrexia
     Dosage: 8HOURS ER TAB 650MG?EXTENDED RELEASE TABLET
     Route: 048
     Dates: start: 20241028, end: 20241028
  58. ALDACTONE [Concomitant]
     Active Substance: SPIRONOLACTONE
     Indication: Oedema
     Route: 048
     Dates: start: 20241105, end: 20241119
  59. PRUCALOPRIDE SUCCINATE [Concomitant]
     Active Substance: PRUCALOPRIDE SUCCINATE
     Indication: Constipation
     Dosage: TIME INTERVAL: AS NECESSARY: FREQUENCY TEXT: PRN
     Route: 048
     Dates: start: 20241116, end: 20241118
  60. PRUCALOPRIDE SUCCINATE [Concomitant]
     Active Substance: PRUCALOPRIDE SUCCINATE
     Indication: Constipation
     Dosage: TIME INTERVAL: AS NECESSARY: FREQUENCY TEXT: PRN
     Route: 048
     Dates: start: 20241112, end: 20241115
  61. Topisol [Concomitant]
     Indication: Rash
     Dosage: TIME INTERVAL: AS NECESSARY: UNIT DOSE: UNKNOWN GRAM,TOPICAL? MILK LOTION 80G?FREQUENCY TEXT: PRN
     Dates: start: 20241114, end: 20241121
  62. Diclomed [Concomitant]
     Indication: Prophylaxis
     Dosage: TIME INTERVAL: AS NECESSARY: SOLUTION 0.074%?FREQUENCY TEXT: PRN, ROUTE - OTHER
     Dates: start: 20241108, end: 20241121
  63. Diclomed [Concomitant]
     Indication: Prophylaxis
     Dosage: TIME INTERVAL: AS NECESSARY: 0.074% SOLUTION
     Dates: start: 20250310, end: 20250330
  64. Diclomed [Concomitant]
     Indication: Prophylaxis
     Dosage: TIME INTERVAL: AS NECESSARY: 0.074% SOLUTION
     Dates: start: 20250528, end: 20250608
  65. Diclomed [Concomitant]
     Indication: Prophylaxis
     Dosage: TIME INTERVAL: AS NECESSARY: 0.074%SOLUTION
     Dates: start: 20250226, end: 20250309
  66. Dulcolax [Concomitant]
     Indication: Constipation
     Dosage: UNIT DOSE: 1 PILL
     Route: 054
     Dates: start: 20241118, end: 20241118
  67. LASIX [Concomitant]
     Active Substance: FUROSEMIDE
     Indication: Oedema
     Dosage: TIME INTERVAL: AS NECESSARY: FREQUENCY TEXT: PRN
     Route: 042
     Dates: start: 20241028, end: 20241104
  68. LASIX [Concomitant]
     Active Substance: FUROSEMIDE
     Indication: Oedema
     Dosage: TIME INTERVAL: AS NECESSARY: FREQUENCY TEXT: PRN
     Route: 042
     Dates: start: 20241108, end: 20241117
  69. Mypol [Concomitant]
     Indication: Pain prophylaxis
     Route: 048
     Dates: start: 20241024, end: 20241025
  70. Mypol [Concomitant]
     Indication: Pain prophylaxis
     Dosage: TIME INTERVAL: 0.33333333 DAYS: FREQUENCY TEXT: PRN
     Route: 048
     Dates: start: 20241120, end: 20241121
  71. Mypol [Concomitant]
     Indication: Pain prophylaxis
     Dosage: TIME INTERVAL: 0.33333333 DAYS: FREQUENCY TEXT: PRN
     Route: 048
     Dates: start: 20241202, end: 20241203
  72. TRAMADOL HYDROCHLORIDE [Concomitant]
     Active Substance: TRAMADOL HYDROCHLORIDE
     Indication: Pain prophylaxis
     Dosage: 50MG/ML?FREQUENCY TEXT: PRN
     Route: 042
     Dates: start: 20241116, end: 20241124
  73. DACOGEN [Concomitant]
     Active Substance: DECITABINE
     Indication: Acute myeloid leukaemia
     Route: 042
     Dates: start: 20241025, end: 20241029
  74. DACOGEN [Concomitant]
     Active Substance: DECITABINE
     Indication: Acute myeloid leukaemia
     Route: 042
     Dates: start: 20250124, end: 20250128
  75. DACOGEN [Concomitant]
     Active Substance: DECITABINE
     Indication: Acute myeloid leukaemia
     Route: 042
     Dates: start: 20241213, end: 20241217
  76. DACOGEN [Concomitant]
     Active Substance: DECITABINE
     Indication: Acute myeloid leukaemia
     Route: 042
     Dates: start: 20250707, end: 20250711
  77. DACOGEN [Concomitant]
     Active Substance: DECITABINE
     Indication: Acute myeloid leukaemia
     Route: 042
     Dates: start: 20250310, end: 20250314
  78. DACOGEN [Concomitant]
     Active Substance: DECITABINE
     Indication: Acute myeloid leukaemia
     Route: 042
     Dates: start: 20250526, end: 20250530
  79. DACOGEN [Concomitant]
     Active Substance: DECITABINE
     Indication: Acute myeloid leukaemia
     Route: 042
     Dates: start: 20250421, end: 20250425
  80. HUMULIN R [Concomitant]
     Active Substance: INSULIN HUMAN
     Indication: Diabetes mellitus
     Dosage: 100IU?FREQUENCY TEXT: PRN
     Route: 058
     Dates: start: 20241119
  81. Solondo [Concomitant]
     Indication: Dyspnoea
     Route: 048
     Dates: start: 20241123
  82. Laevan forte [Concomitant]
     Indication: Constipation
     Dosage: FREQUENCY TEXT: PRN
     Route: 054
     Dates: start: 20241111, end: 20241116
  83. Dexamethasone daewon [Concomitant]
     Indication: Dyspnoea
     Route: 042
     Dates: start: 20241117, end: 20241117
  84. IPRATROPIUM BROMIDE [Concomitant]
     Active Substance: IPRATROPIUM BROMIDE
     Indication: Dyspnoea
     Dosage: 500MCG/2ML?RESPIRATORY (INHALATION)?SOLUTION
     Dates: start: 20241108, end: 20241111
  85. IPRATROPIUM BROMIDE [Concomitant]
     Active Substance: IPRATROPIUM BROMIDE
     Indication: Dyspnoea
     Dosage: 500MCG/2ML?RESPIRATORY (INHALATION)?SOLUTION
     Dates: start: 20241112, end: 20241112
  86. Esomezol [Concomitant]
     Indication: Gastritis prophylaxis
     Route: 048
     Dates: start: 20241113
  87. MAGNESIUM HYDROXIDE [Concomitant]
     Active Substance: MAGNESIUM HYDROXIDE
     Indication: Constipation
     Dosage: 1000MG
     Route: 048
     Dates: start: 20250128, end: 20250211
  88. MAGNESIUM HYDROXIDE [Concomitant]
     Active Substance: MAGNESIUM HYDROXIDE
     Indication: Constipation
     Dosage: 500MG
     Route: 048
     Dates: start: 20241111, end: 20241111
  89. MAGNESIUM HYDROXIDE [Concomitant]
     Active Substance: MAGNESIUM HYDROXIDE
     Indication: Constipation
     Dosage: 1000MG
     Route: 048
     Dates: start: 20241127, end: 20241231
  90. MAGNESIUM HYDROXIDE [Concomitant]
     Active Substance: MAGNESIUM HYDROXIDE
     Indication: Constipation
     Dosage: 500MG
     Route: 048
     Dates: start: 20241120, end: 20241126
  91. MAGNESIUM HYDROXIDE [Concomitant]
     Active Substance: MAGNESIUM HYDROXIDE
     Indication: Constipation
     Dosage: 1000MG
     Route: 048
     Dates: start: 20250331, end: 20250420
  92. Megace F [Concomitant]
     Indication: Prophylaxis
     Route: 048
     Dates: start: 20241104, end: 20241120
  93. Megace F [Concomitant]
     Indication: Prophylaxis
     Route: 048
     Dates: start: 20250113, end: 20250123
  94. Salon [Concomitant]
     Indication: Pyrexia
     Dosage: UNIT DOSE: 0.5 VIAL
     Route: 042
     Dates: start: 20241107, end: 20241108
  95. Salon [Concomitant]
     Indication: Pyrexia
     Route: 042
     Dates: start: 20241113, end: 20241117
  96. Salon [Concomitant]
     Indication: Pyrexia
     Dosage: UNIT DOSE: 1 VIAL
     Route: 042
     Dates: start: 20241106, end: 20241106
  97. Salon [Concomitant]
     Indication: Pyrexia
     Route: 042
     Dates: start: 20241118, end: 20241122
  98. DIABEX [Concomitant]
     Active Substance: METFORMIN HYDROCHLORIDE
     Indication: Diabetes mellitus
     Route: 048
     Dates: start: 20240930, end: 20241126
  99. BENZYDAMINE [Concomitant]
     Active Substance: BENZYDAMINE
     Indication: Mouth ulceration
     Dosage: TIME INTERVAL: AS NECESSARY: UNIT DOSE: 1IU?SPRAY 0.3%
     Dates: start: 20250226, end: 20250309
  100. Tasna [Concomitant]
     Indication: Prophylaxis
     Dosage: UNIT DOSE: UKML ROUTE: GARGLE?AS NEEDED
     Dates: start: 20251025
  101. DIFLUCAN [Concomitant]
     Active Substance: FLUCONAZOLE
     Indication: Antifungal prophylaxis
     Route: 048
     Dates: start: 20250113, end: 20250122
  102. DIFLUCAN [Concomitant]
     Active Substance: FLUCONAZOLE
     Indication: Antifungal prophylaxis
     Dosage: TIME INTERVAL: 0.33333333 DAYS
     Route: 048
     Dates: start: 20250221, end: 20250225
  103. DIFLUCAN [Concomitant]
     Active Substance: FLUCONAZOLE
     Indication: Antifungal prophylaxis
     Route: 048
     Dates: start: 20250526, end: 20250803
  104. BANAN [Concomitant]
     Active Substance: CEFPODOXIME PROXETIL
     Indication: Infection prophylaxis
     Dosage: TIME INTERVAL: 0.33333333 DAYS: FREQUENCY TEXT: 2
     Route: 048
     Dates: start: 20250221, end: 20250225
  105. NEUPOGEN [Concomitant]
     Active Substance: FILGRASTIM
     Indication: Neutropenia
     Dosage: PREFILLED SYRINGE INJ 150??G/0.6ML
     Route: 058
     Dates: start: 20250113, end: 20250113
  106. NEUPOGEN [Concomitant]
     Active Substance: FILGRASTIM
     Indication: Neutropenia
     Dosage: PREFILLED SYRINGE INJ 150??G/0.6ML
     Route: 058
     Dates: start: 20250630, end: 20250630
  107. NEUPOGEN [Concomitant]
     Active Substance: FILGRASTIM
     Indication: Neutropenia
     Dosage: PREFILLED SYRINGE INJ 150??G/0.6ML
     Route: 058
     Dates: start: 20250221, end: 20250225
  108. GEMIGLIPTIN\METFORMIN [Concomitant]
     Active Substance: GEMIGLIPTIN\METFORMIN
     Indication: Diabetes mellitus
     Dosage: SR?50/500MG
     Route: 048
     Dates: start: 20250125
  109. CELEBREX [Concomitant]
     Active Substance: CELECOXIB
     Indication: Arthralgia
     Route: 048
     Dates: start: 20250421
  110. Kamistad n [Concomitant]
     Indication: Mouth ulceration
     Dosage: UNIT DOSE: UKG,TOPICAL
     Dates: start: 20250226, end: 20250309
  111. Mucobarrier [Concomitant]
     Indication: Prophylaxis
     Dosage: MOUTH WASH?UNIT DOSE:UKML
     Dates: start: 20250331, end: 202504

REACTIONS (2)
  - Pulmonary alveolar haemorrhage [Recovered/Resolved]
  - Pancytopenia [Recovered/Resolved]

NARRATIVE: CASE EVENT DATE: 20241027
